FAERS Safety Report 6528686-6 (Version None)
Quarter: 2009Q4

REPORT INFORMATION
  Report Type: 
  Country: None (occurrence: None)
  Receive Date: 20091222
  Receipt Date: 20091110
  Transmission Date: 20100525
  Serious: No
  Sender: FDA-Public Use
  Company Number: ALL1-2009-03591

PATIENT
  Age: 26 Year
  Sex: Female
  Weight: 79.4 kg

DRUGS (3)
  1. VYVANSE [Suspect]
     Indication: ATTENTION DEFICIT/HYPERACTIVITY DISORDER
     Dosage: 40 MG, 1X/DAY: QD, ORAL
     Route: 048
     Dates: start: 20091103
  2. CELEXA [Concomitant]
  3. XANAX [Concomitant]

REACTIONS (2)
  - DRUG EFFECT DECREASED [None]
  - MALAISE [None]
